FAERS Safety Report 23816630 (Version 1)
Quarter: 2024Q2

REPORT INFORMATION
  Report Type: Spontaneous
  Country: BR (occurrence: None)
  Receive Date: 20240503
  Receipt Date: 20240503
  Transmission Date: 20240716
  Serious: Yes (Hospitalization)
  Sender: FDA-Public Use
  Company Number: BR-ROCHE-3556125

PATIENT
  Age: 37 Year
  Sex: Female

DRUGS (2)
  1. RITUXIMAB [Suspect]
     Active Substance: RITUXIMAB
     Indication: Neuromyelitis optica spectrum disorder
     Route: 065
  2. AZATHIOPRINE [Concomitant]
     Active Substance: AZATHIOPRINE
     Indication: Neuromyelitis optica spectrum disorder
     Dosage: 150 MG (2.3 MG/KG/DAY)
     Dates: start: 2018

REACTIONS (2)
  - Hemiparesis [Unknown]
  - Off label use [Unknown]

NARRATIVE: CASE EVENT DATE: 20240101
